FAERS Safety Report 10362654 (Version 2)
Quarter: 2014Q3

REPORT INFORMATION
  Report Type: Spontaneous
  Country: JP (occurrence: JP)
  Receive Date: 20140805
  Receipt Date: 20140907
  Transmission Date: 20150326
  Serious: Yes (Hospitalization, Other)
  Sender: FDA-Public Use
  Company Number: PHHY2012JP133794

PATIENT
  Age: 78 Year
  Sex: Female
  Weight: 63 kg

DRUGS (4)
  1. EXJADE [Suspect]
     Active Substance: DEFERASIROX
     Dosage: 500 MG, PER DAY
     Dates: start: 201108
  2. EXJADE [Suspect]
     Active Substance: DEFERASIROX
     Indication: MYELODYSPLASTIC SYNDROME
     Dosage: 500 MG, PER DAY
     Dates: start: 20111201
  3. EXJADE [Suspect]
     Active Substance: DEFERASIROX
     Dosage: 500 MG
     Dates: start: 201206
  4. EXJADE [Suspect]
     Active Substance: DEFERASIROX
     Dosage: 500 MG, EVERY 4 DAYS

REACTIONS (1)
  - Infection [Unknown]
